FAERS Safety Report 13225606 (Version 1)
Quarter: 2017Q1

REPORT INFORMATION
  Report Type: Spontaneous
  Country: CA (occurrence: CA)
  Receive Date: 20170213
  Receipt Date: 20170213
  Transmission Date: 20170428
  Serious: Yes (Other)
  Sender: FDA-Public Use
  Company Number: CA-ROCHE-1892573

PATIENT
  Age: 76 Year
  Sex: Female

DRUGS (11)
  1. TYLENOL #1 (CANADA) [Concomitant]
     Active Substance: ACETAMINOPHEN\CAFFEINE\CODEINE PHOSPHATE
     Indication: ARTHRITIS
     Route: 048
  2. ACTEMRA [Suspect]
     Active Substance: TOCILIZUMAB
     Indication: RHEUMATOID ARTHRITIS
     Dosage: THERAPY DURATION:  180.0 DAY(S)
     Route: 042
  3. ACTONEL [Concomitant]
     Active Substance: RISEDRONATE SODIUM
     Route: 065
  4. RITUXAN [Suspect]
     Active Substance: RITUXIMAB
     Indication: RHEUMATOID ARTHRITIS
     Route: 042
  5. BISOPROLOL [Concomitant]
     Active Substance: BISOPROLOL
     Route: 065
  6. METHYLPREDNISOLONE SODIUM SUCCINATE. [Concomitant]
     Active Substance: METHYLPREDNISOLONE SODIUM SUCCINATE
     Route: 042
  7. RAMIPRIL. [Concomitant]
     Active Substance: RAMIPRIL
     Route: 065
  8. ORENCIA [Suspect]
     Active Substance: ABATACEPT
     Indication: PRODUCT USED FOR UNKNOWN INDICATION
     Route: 065
  9. ASA [Concomitant]
     Active Substance: ASPIRIN
     Route: 065
  10. HYDROCHLOROTHIAZIDE. [Concomitant]
     Active Substance: HYDROCHLOROTHIAZIDE
     Route: 065
  11. BENADRYL [Concomitant]
     Active Substance: DIPHENHYDRAMINE HYDROCHLORIDE
     Route: 048

REACTIONS (11)
  - Infusion related reaction [Unknown]
  - Pain [Unknown]
  - Diarrhoea [Unknown]
  - Blood pressure systolic increased [Unknown]
  - Condition aggravated [Unknown]
  - Hallucination [Unknown]
  - Rheumatoid arthritis [Unknown]
  - Amnesia [Unknown]
  - Balance disorder [Unknown]
  - Joint swelling [Unknown]
  - Oxygen saturation decreased [Unknown]
